FAERS Safety Report 6713783-2 (Version None)
Quarter: 2010Q2

REPORT INFORMATION
  Report Type: 
  Country: None (occurrence: None)
  Receive Date: 20100506
  Receipt Date: 20100426
  Transmission Date: 20101027
  Serious: Yes (Hospitalization)
  Sender: FDA-Public Use
  Company Number: ES-JNJFOC-20100407332

PATIENT
  Age: 41 Year
  Sex: Female

DRUGS (2)
  1. REMICADE [Suspect]
     Indication: PSORIATIC ARTHROPATHY
     Dosage: RECEIVED 4 DOSES
     Route: 042
  2. REMICADE [Suspect]
     Indication: PSORIASIS
     Dosage: RECEIVED 4 DOSES
     Route: 042

REACTIONS (1)
  - DISSEMINATED TUBERCULOSIS [None]
